FAERS Safety Report 6698576-7 (Version None)
Quarter: 2010Q2

REPORT INFORMATION
  Report Type: 
  Country: None (occurrence: None)
  Receive Date: 20100426
  Receipt Date: 20100426
  Transmission Date: 20101027
  Serious: Yes (Life-Threatening)
  Sender: FDA-Public Use
  Company Number: None

PATIENT
  Age: 69 Year
  Sex: Female

DRUGS (2)
  1. FERRLECIT [Suspect]
     Indication: ANAEMIA
     Dosage: 125MG DAILY IV BOLUS
     Route: 040
     Dates: start: 20100413, end: 20100413
  2. FERRLECIT [Concomitant]

REACTIONS (6)
  - ABDOMINAL PAIN [None]
  - BACK PAIN [None]
  - HYPERTENSION [None]
  - INFUSION RELATED REACTION [None]
  - NAUSEA [None]
  - RESPIRATORY DISTRESS [None]
